FAERS Safety Report 11464494 (Version 1)
Quarter: 2015Q3

REPORT INFORMATION
  Report Type: Spontaneous
  Country: US (occurrence: US)
  Receive Date: 20150831
  Receipt Date: 20150831
  Transmission Date: 20151125
  Serious: Yes (Hospitalization, Other)
  Sender: FDA-Public Use
  Company Number: US-ELI_LILLY_AND_COMPANY-US201106003691

PATIENT
  Age: 74 Year
  Sex: Male

DRUGS (3)
  1. CYMBALTA [Suspect]
     Active Substance: DULOXETINE HYDROCHLORIDE
     Dosage: 60 MG, QD
     Dates: start: 2010
  2. ASPIRIN                                 /USA/ [Concomitant]
     Dosage: UNK
     Dates: end: 201106
  3. PLAVIX [Concomitant]
     Active Substance: CLOPIDOGREL BISULFATE
     Dosage: UNK
     Dates: end: 201106

REACTIONS (5)
  - Gastric ulcer haemorrhage [Unknown]
  - Flight of ideas [Unknown]
  - Mental status changes [Unknown]
  - Nervousness [Unknown]
  - Pressure of speech [Unknown]

NARRATIVE: CASE EVENT DATE: 201106
